FAERS Safety Report 23587966 (Version 2)
Quarter: 2024Q1

REPORT INFORMATION
  Report Type: Report from Study
  Country: US (occurrence: US)
  Receive Date: 20240301
  Receipt Date: 20240302
  Transmission Date: 20240409
  Serious: No
  Sender: FDA-Public Use
  Company Number: US-SANDOZ-SDZ2023US076031

PATIENT
  Sex: Male

DRUGS (2)
  1. OMNITROPE [Suspect]
     Active Substance: SOMATROPIN
     Indication: Short stature
     Dosage: 1 MG, QD
     Route: 058
  2. OMNITROPE [Suspect]
     Active Substance: SOMATROPIN
     Indication: Short stature
     Dosage: 1 MG, QD
     Route: 058

REACTIONS (8)
  - Incorrect dose administered [Unknown]
  - Product label issue [Unknown]
  - Incorrect product administration duration [Unknown]
  - Needle issue [Unknown]
  - Device leakage [Unknown]
  - Product storage error [Unknown]
  - Product availability issue [Unknown]
  - Overdose [Unknown]
